FAERS Safety Report 8580421-6 (Version None)
Quarter: 2012Q3

REPORT INFORMATION
  Report Type: 
  Country: None (occurrence: None)
  Receive Date: 20120808
  Receipt Date: 20120803
  Transmission Date: 20120928
  Serious: Yes (Disabling, Other)
  Sender: FDA-Public Use
  Company Number: GB-TEVA-337288ISR

PATIENT
  Sex: Female

DRUGS (3)
  1. TRISENOX [Interacting]
     Indication: ACUTE MYELOID LEUKAEMIA
     Route: 042
     Dates: start: 20120221, end: 20120303
  2. LESTAURTINIB [Suspect]
  3. ATRACURIUM BESYLATE [Interacting]

REACTIONS (2)
  - ACUTE PSYCHOSIS [None]
  - DRUG INTERACTION [None]
